FAERS Safety Report 8842920 (Version 2)
Quarter: 2012Q4

REPORT INFORMATION
  Report Type: 
  Country: US (occurrence: US)
  Receive Date: 20121016
  Receipt Date: 20121210
  Transmission Date: 20130627
  Serious: No
  Sender: FDA-Public Use
  Company Number: US-ELI_LILLY_AND_COMPANY-US201206008424

PATIENT
  Age: 70 Year
  Sex: Female
  Weight: 36.74 kg

DRUGS (9)
  1. FORTEO [Suspect]
     Indication: OSTEOPOROSIS
     Dosage: 20 ug, qd
     Dates: start: 20120614
  2. FORTEO [Suspect]
     Dosage: 20 ug, qd
  3. FORTEO [Suspect]
     Dosage: 20 ug, qd
     Dates: end: 20120920
  4. NITROFURANTIN [Concomitant]
     Dosage: UNK
  5. DETROL [Concomitant]
     Dosage: UNK
  6. BACLOFEN [Concomitant]
     Dosage: UNK
  7. VIT D [Concomitant]
     Dosage: UNK
  8. ASA [Concomitant]
     Dosage: UNK
  9. CELLCEPT [Concomitant]
     Dosage: UNK

REACTIONS (5)
  - Urinary tract infection [Recovered/Resolved]
  - Nasopharyngitis [Unknown]
  - Asthenia [Not Recovered/Not Resolved]
  - Injection site pain [Unknown]
  - Incorrect storage of drug [Unknown]
